FAERS Safety Report 9744858 (Version 2)
Quarter: 2014Q1

REPORT INFORMATION
  Report Type: Report from Study
  Country: DE (occurrence: DE)
  Receive Date: 20131211
  Receipt Date: 20140112
  Transmission Date: 20141002
  Serious: Yes (Other)
  Sender: FDA-Public Use
  Company Number: DE-ROCHE-1316519

PATIENT
  Age: 35 Year
  Sex: Male
  Weight: 79.4 kg

DRUGS (4)
  1. PEGASYS [Suspect]
     Indication: CHRONIC HEPATITIS C
     Route: 058
     Dates: start: 20130517
  2. COPEGUS [Suspect]
     Indication: CHRONIC HEPATITIS C
     Route: 048
     Dates: start: 20130517
  3. BOCEPREVIR [Suspect]
     Indication: CHRONIC HEPATITIS C
     Route: 048
     Dates: start: 20130628
  4. METOCLOPRAMIDE [Concomitant]
     Indication: NAUSEA
     Dosage: 20 TO 30 GTT
     Route: 048
     Dates: start: 20130724

REACTIONS (1)
  - Pancytopenia [Not Recovered/Not Resolved]
